FAERS Safety Report 19273441 (Version 1)
Quarter: 2021Q2

REPORT INFORMATION
  Report Type: Spontaneous
  Country: FR (occurrence: FR)
  Receive Date: 20210519
  Receipt Date: 20210519
  Transmission Date: 20210717
  Serious: Yes (Hospitalization, Other)
  Sender: FDA-Public Use
  Company Number: FR-BAUSCH-BL-2021-016956

PATIENT
  Age: 32 Year
  Sex: Male
  Weight: 91 kg

DRUGS (10)
  1. NEORAL [Suspect]
     Active Substance: CYCLOSPORINE
     Indication: PROPHYLAXIS AGAINST GRAFT VERSUS HOST DISEASE
     Dosage: 150 MG
     Route: 065
     Dates: start: 20201019, end: 20201223
  2. NEORAL [Suspect]
     Active Substance: CYCLOSPORINE
     Dosage: 125 MG
     Route: 065
     Dates: start: 20201224, end: 20201230
  3. NOXAFIL [Concomitant]
     Active Substance: POSACONAZOLE
     Indication: PRODUCT USED FOR UNKNOWN INDICATION
     Dosage: 300 UNK, BID (0/300/0)
     Route: 065
  4. AMLODIPINE [Concomitant]
     Active Substance: AMLODIPINE BESYLATE
     Indication: PRODUCT USED FOR UNKNOWN INDICATION
     Route: 065
  5. DIFFU K [Concomitant]
     Active Substance: POTASSIUM CHLORIDE
     Indication: PRODUCT USED FOR UNKNOWN INDICATION
     Dosage: 600 UNK, BID (600/0/600)
     Route: 065
  6. LANSOPRAZOLE. [Concomitant]
     Active Substance: LANSOPRAZOLE
     Indication: PRODUCT USED FOR UNKNOWN INDICATION
     Dosage: 30 UNK, QD (0?0?30)
     Route: 065
  7. NEORAL [Suspect]
     Active Substance: CYCLOSPORINE
     Dosage: 100 MG
     Route: 065
     Dates: start: 20201231, end: 20210310
  8. HYDROCORTISONE. [Suspect]
     Active Substance: HYDROCORTISONE
     Indication: GRAFT VERSUS HOST DISEASE
     Dosage: 30 MG (20/10/0)
     Route: 065
     Dates: start: 20210401
  9. NEORAL [Suspect]
     Active Substance: CYCLOSPORINE
     Dosage: 175 MG (100/0/75)
     Route: 065
     Dates: start: 20210311
  10. VALACICLOVIR [Concomitant]
     Active Substance: VALACYCLOVIR HYDROCHLORIDE
     Indication: PRODUCT USED FOR UNKNOWN INDICATION
     Dosage: 500 MG, QD
     Route: 065

REACTIONS (3)
  - Pneumonia pneumococcal [Not Recovered/Not Resolved]
  - Neutropenia [Unknown]
  - Lung disorder [Recovered/Resolved]

NARRATIVE: CASE EVENT DATE: 20210409
